FAERS Safety Report 17957051 (Version 5)
Quarter: 2020Q4

REPORT INFORMATION
  Report Type: Spontaneous
  Country: AU (occurrence: AU)
  Receive Date: 20200629
  Receipt Date: 20201102
  Transmission Date: 20210113
  Serious: Yes (Hospitalization, Other)
  Sender: FDA-Public Use
  Company Number: AU-MYLANLABS-2020M1059943

PATIENT
  Age: 60 Year
  Sex: Male

DRUGS (1)
  1. CLOZARIL [Suspect]
     Active Substance: CLOZAPINE
     Indication: SCHIZOPHRENIA
     Dosage: 425 MILLIGRAM
     Route: 048
     Dates: start: 20161202

REACTIONS (6)
  - Haemoglobin decreased [Unknown]
  - Haematocrit decreased [Unknown]
  - Treatment noncompliance [Unknown]
  - Red blood cell count decreased [Unknown]
  - Schizophrenia [Not Recovered/Not Resolved]
  - Monocyte count increased [Unknown]

NARRATIVE: CASE EVENT DATE: 20201023
